FAERS Safety Report 17339407 (Version 2)
Quarter: 2020Q1

REPORT INFORMATION
  Report Type: Report from Study
  Country: US (occurrence: US)
  Receive Date: 20200129
  Receipt Date: 20200210
  Transmission Date: 20200409
  Serious: Yes (Hospitalization)
  Sender: FDA-Public Use
  Company Number: US-ACTELION-A-NJ2020-200953

PATIENT
  Age: 3 Year
  Sex: Female

DRUGS (16)
  1. SILDENAFIL. [Suspect]
     Active Substance: SILDENAFIL
     Indication: PULMONARY HYPERTENSION
     Dosage: 20 MG
     Route: 065
     Dates: start: 20160511
  2. ALDACTONE [Suspect]
     Active Substance: SPIRONOLACTONE
     Indication: CHRONIC RESPIRATORY DISEASE
     Dosage: 9.2 MG
     Route: 065
  3. DIURIL [Suspect]
     Active Substance: CHLOROTHIAZIDE
     Indication: CHRONIC RESPIRATORY DISEASE
     Dosage: 50 MG
     Route: 065
  4. POLY VI SOL [Concomitant]
  5. IPRATROPIUM [Concomitant]
     Active Substance: IPRATROPIUM
  6. MUPIROCIN. [Concomitant]
     Active Substance: MUPIROCIN
  7. POLYETHYLENE GLYCOL [Concomitant]
     Active Substance: POLYETHYLENE GLYCOLS
  8. KETOCONAZOL [Concomitant]
     Active Substance: KETOCONAZOLE
  9. FLOVENT HFA [Concomitant]
     Active Substance: FLUTICASONE PROPIONATE
  10. ALBUTEROL. [Concomitant]
     Active Substance: ALBUTEROL
  11. GLYCERIN SUPPOSITORIES [Concomitant]
  12. TRACLEER [Suspect]
     Active Substance: BOSENTAN
     Indication: PULMONARY HYPERTENSION
     Dosage: 20.4 MG
     Route: 048
     Dates: start: 20170321
  13. MONTELUKAST [Concomitant]
     Active Substance: MONTELUKAST SODIUM
  14. LORATADINE. [Concomitant]
     Active Substance: LORATADINE
  15. ACETAMINOPHEN. [Concomitant]
     Active Substance: ACETAMINOPHEN
  16. PYRIDOXINE [Concomitant]
     Active Substance: PYRIDOXINE

REACTIONS (2)
  - Pneumonia [Recovering/Resolving]
  - Nasopharyngitis [Recovering/Resolving]

NARRATIVE: CASE EVENT DATE: 20200115
